FAERS Safety Report 6876746-2 (Version None)
Quarter: 2010Q2

REPORT INFORMATION
  Report Type: 
  Country: None (occurrence: None)
  Receive Date: 20100616
  Receipt Date: 20100426
  Transmission Date: 20101027
  Serious: No
  Sender: FDA-Public Use
  Company Number: DSA_43057_2010

PATIENT
  Age: 6 Year
  Sex: Male

DRUGS (2)
  1. XENAZINE [Suspect]
     Indication: CHOREA
     Dosage: 50 MG QD
     Dates: start: 20100202, end: 20100401
  2. LEVOTHYROXINE SODIUM [Concomitant]

REACTIONS (3)
  - DROOLING [None]
  - FALL [None]
  - HYPOTONIA [None]
